FAERS Safety Report 6457407-0 (Version None)
Quarter: 2009Q4

REPORT INFORMATION
  Report Type: 
  Country: None (occurrence: None)
  Receive Date: 20091125
  Receipt Date: 20091119
  Transmission Date: 20100525
  Serious: No
  Sender: FDA-Public Use
  Company Number: US-B.I. PHARMACEUTICALS,INC./RIDGEFIELD-2009-BP-13620BP

PATIENT
  Sex: Female

DRUGS (4)
  1. SPIRIVA [Suspect]
     Indication: CHRONIC OBSTRUCTIVE PULMONARY DISEASE
     Dosage: 18 MCG
     Route: 055
     Dates: start: 20090801, end: 20090901
  2. PERSANTINE [Concomitant]
     Indication: CAROTID ARTERY DISEASE
     Dates: start: 20090501
  3. CARDIZEM [Concomitant]
     Indication: HYPERTENSION
     Dosage: 80 MG
     Dates: start: 19940101
  4. COZAAR [Concomitant]
     Indication: HYPERTENSION
     Dosage: 50 MG
     Dates: start: 19940101

REACTIONS (1)
  - DYSPNOEA [None]
